FAERS Safety Report 19967382 (Version 2)
Quarter: 2021Q4

REPORT INFORMATION
  Report Type: Spontaneous
  Country: US (occurrence: US)
  Receive Date: 20211019
  Receipt Date: 20211026
  Transmission Date: 20220303
  Serious: Yes (Other)
  Sender: FDA-Public Use
  Company Number: US-ROCHE-2939231

PATIENT
  Age: 74 Year
  Sex: Male
  Weight: 92.62 kg

DRUGS (5)
  1. ERIVEDGE [Suspect]
     Active Substance: VISMODEGIB
     Indication: Neoplasm skin
     Route: 048
     Dates: start: 20210426
  2. TAMSULOSIN [Concomitant]
     Active Substance: TAMSULOSIN
  3. CITALOPRAM [Concomitant]
     Active Substance: CITALOPRAM HYDROBROMIDE
  4. ALPRAZOLAM [Concomitant]
     Active Substance: ALPRAZOLAM
  5. ROSUVASTATIN [Concomitant]
     Active Substance: ROSUVASTATIN

REACTIONS (2)
  - Dizziness [Unknown]
  - Amnesia [Unknown]

NARRATIVE: CASE EVENT DATE: 20211013
